FAERS Safety Report 8961285 (Version 2)
Quarter: 2013Q1

REPORT INFORMATION
  Report Type: Spontaneous
  Country: US (occurrence: US)
  Receive Date: 20121212
  Receipt Date: 20130213
  Transmission Date: 20140127
  Serious: No
  Sender: FDA-Public Use
  Company Number: US-009507513-1212USA004713

PATIENT
  Sex: Female
  Weight: 64.85 kg

DRUGS (3)
  1. MIRALAX [Suspect]
     Indication: FAECES HARD
     Dosage: 17 G, QD
     Route: 048
  2. MIRALAX [Suspect]
     Indication: CONSTIPATION
     Dosage: UNK
  3. MIRALAX [Suspect]
     Indication: MEDICAL OBSERVATION

REACTIONS (1)
  - Dysgeusia [Recovered/Resolved]
